FAERS Safety Report 6062665-0 (Version None)
Quarter: 2009Q1

REPORT INFORMATION
  Report Type: 
  Country: None (occurrence: None)
  Receive Date: 20090129
  Receipt Date: 20090116
  Transmission Date: 20090719
  Serious: Yes (Hospitalization)
  Sender: FDA-Public Use
  Company Number: CIP09000139

PATIENT
  Age: 60 Year
  Sex: Female

DRUGS (7)
  1. RISEDRONATE SODIUM [Suspect]
     Indication: OSTEOPOROSIS
     Dosage: 2.5 MG, DAILY, ORAL ; 42.5 1 TIME DOSE (17 TABLETS)
     Route: 048
     Dates: start: 20080519, end: 20081215
  2. RISEDRONATE SODIUM [Suspect]
     Indication: OSTEOPOROSIS
     Dosage: 2.5 MG, DAILY, ORAL ; 42.5 1 TIME DOSE (17 TABLETS)
     Route: 048
     Dates: start: 20081216, end: 20081216
  3. YOKUKAN-SAN (HERBAL EXTRACTS NOS) [Concomitant]
  4. GRAMALIL (TIAPRIDE HYDROCHLORIDE) [Concomitant]
  5. ASPIRIN [Concomitant]
  6. LIPITOR [Concomitant]
  7. ARICEPT /01318901/ (DONEPEZIL) [Concomitant]

REACTIONS (2)
  - ALTERED STATE OF CONSCIOUSNESS [None]
  - OVERDOSE [None]
